FAERS Safety Report 17655375 (Version 1)
Quarter: 2020Q2

REPORT INFORMATION
  Report Type: Spontaneous
  Country: US (occurrence: US)
  Receive Date: 20200409
  Receipt Date: 20200409
  Transmission Date: 20200713
  Serious: Yes (Death, Life-Threatening, Hospitalization)
  Sender: FDA-Public Use
  Company Number: None

PATIENT
  Age: 70 Year
  Sex: Male
  Weight: 76.2 kg

DRUGS (2)
  1. SULFAMETHOXAZOLE/TRIMETHOPRIM (SULFAMETHOXAZOLE800MG/TRIMETHOPRIM 160 [Suspect]
     Active Substance: SULFAMETHOXAZOLE\TRIMETHOPRIM
     Indication: OSTEOMYELITIS
     Dosage: ?          OTHER DOSE:800/160 MG;?
     Route: 048
     Dates: start: 20190410, end: 20190512
  2. METHOTREXATE (METHOTREXATE NA 2.5MG TAB) [Suspect]
     Active Substance: METHOTREXATE
     Indication: RHEUMATOID ARTHRITIS
     Route: 048
     Dates: start: 20150115, end: 20190520

REACTIONS (16)
  - Dysuria [None]
  - Nausea [None]
  - Anaemia [None]
  - Pancytopenia [None]
  - Metabolic encephalopathy [None]
  - Cough [None]
  - Asthenia [None]
  - Cardiac failure [None]
  - Liver injury [None]
  - Thrombocytopenia [None]
  - Pneumonia [None]
  - Drug interaction [None]
  - Amputation [None]
  - Leukopenia [None]
  - Osteomyelitis [None]
  - Vomiting [None]

NARRATIVE: CASE EVENT DATE: 20190520
